FAERS Safety Report 6958119-7 (Version None)
Quarter: 2010Q3

REPORT INFORMATION
  Report Type: 
  Country: None (occurrence: None)
  Receive Date: 20100831
  Receipt Date: 20100818
  Transmission Date: 20110219
  Serious: Yes (Hospitalization)
  Sender: FDA-Public Use
  Company Number: CZ-ELI_LILLY_AND_COMPANY-CZ201008006131

PATIENT
  Age: 76 Year
  Sex: Male
  Weight: 81 kg

DRUGS (12)
  1. PRASUGREL HYDROCHLORIDE [Suspect]
     Indication: ACUTE MYOCARDIAL INFARCTION
     Dosage: 10 MG, DAILY (1/D)
     Route: 048
     Dates: start: 20100721
  2. PRASUGREL HYDROCHLORIDE [Suspect]
     Dosage: 60 MG, UNKNOWN
     Route: 048
     Dates: start: 20100720, end: 20100720
  3. ASPIRIN [Concomitant]
     Indication: CORONARY ARTERY DISEASE
     Route: 048
     Dates: start: 20070101
  4. AMLODIPINE [Concomitant]
     Indication: HYPERTENSION
     Route: 048
     Dates: start: 20100722
  5. SULODEXINE [Concomitant]
     Route: 048
     Dates: start: 20040101
  6. OMEPRAZOLE [Concomitant]
     Indication: PEPTIC ULCER
     Route: 048
     Dates: start: 20040101
  7. ATORVASTATIN CALCIUM [Concomitant]
     Indication: CORONARY ARTERY DISEASE
     Route: 048
     Dates: start: 20070101
  8. TRAMADOLE [Concomitant]
     Indication: PAIN
  9. PENTOXIFYLLINE [Concomitant]
     Dates: start: 20090101
  10. INSULIN HUMAN [Concomitant]
     Indication: DIABETES MELLITUS
     Route: 058
     Dates: start: 20090101
  11. CALCIUM ACETATE [Concomitant]
     Indication: RENAL FAILURE CHRONIC
  12. MAGNESIUM [Concomitant]
     Indication: RENAL FAILURE CHRONIC

REACTIONS (1)
  - CARDIAC FAILURE [None]
